FAERS Safety Report 9033820 (Version 1)
Quarter: 2013Q1

REPORT INFORMATION
  Report Type: Spontaneous
  Country: CA (occurrence: CA)
  Receive Date: 20130128
  Receipt Date: 20130128
  Transmission Date: 20140127
  Serious: Yes (Hospitalization)
  Sender: FDA-Public Use
  Company Number: CA-AMGEN-CANSP2012070561

PATIENT
  Sex: Female

DRUGS (2)
  1. PROLIA [Suspect]
     Indication: OSTEOPOROSIS
     Dosage: UNK
     Dates: start: 20120426
  2. PROLIA [Suspect]

REACTIONS (3)
  - Bronchitis [Not Recovered/Not Resolved]
  - Bacterial infection [Unknown]
  - Bronchial secretion retention [Not Recovered/Not Resolved]
